FAERS Safety Report 9384128 (Version 1)
Quarter: 2013Q3

REPORT INFORMATION
  Report Type: Report from Study
  Country: US (occurrence: US)
  Receive Date: 20130705
  Receipt Date: 20130705
  Transmission Date: 20140515
  Serious: Yes (Hospitalization)
  Sender: FDA-Public Use
  Company Number: US-ROCHE-1213388

PATIENT
  Age: 66 Year
  Sex: Male
  Weight: 74.46 kg

DRUGS (13)
  1. BEVACIZUMAB [Suspect]
     Indication: SQUAMOUS CELL CARCINOMA OF HEAD AND NECK
     Route: 065
     Dates: start: 20130306
  2. BEVACIZUMAB [Suspect]
     Route: 065
     Dates: start: 20130326, end: 20130528
  3. DOCETAXEL [Suspect]
     Indication: SQUAMOUS CELL CARCINOMA OF HEAD AND NECK
     Route: 065
     Dates: start: 20130306
  4. DOCETAXEL [Suspect]
     Route: 065
     Dates: start: 20130326
  5. CISPLATIN [Suspect]
     Indication: SQUAMOUS CELL CARCINOMA OF HEAD AND NECK
     Dosage: DATE OF LAST INFUSION: 11/JUN/2013
     Route: 065
     Dates: start: 20130306
  6. CISPLATIN [Suspect]
     Route: 065
     Dates: start: 20130326
  7. CISPLATIN [Suspect]
     Route: 065
     Dates: start: 20130507
  8. CETUXIMAB [Suspect]
     Indication: SQUAMOUS CELL CARCINOMA OF HEAD AND NECK
     Dosage: DATE OF LAST INFUSION: 11/JUN/2013
     Route: 065
     Dates: start: 20130306
  9. CETUXIMAB [Suspect]
     Dosage: DATE OF LAST INFUSION: 11/JUN/2013
     Route: 065
     Dates: start: 20130312
  10. CETUXIMAB [Suspect]
     Route: 065
     Dates: start: 20130319
  11. CETUXIMAB [Suspect]
     Route: 065
     Dates: start: 20130326
  12. CETUXIMAB [Suspect]
     Route: 065
     Dates: start: 20130402
  13. CETUXIMAB [Suspect]
     Route: 065
     Dates: start: 20130409

REACTIONS (3)
  - Pneumonia [Unknown]
  - Appendicitis [Not Recovered/Not Resolved]
  - Atrial fibrillation [Recovered/Resolved]
